FAERS Safety Report 9629440 (Version 1)
Quarter: 2013Q4

REPORT INFORMATION
  Report Type: Spontaneous
  Country: US (occurrence: US)
  Receive Date: 20131017
  Receipt Date: 20131017
  Transmission Date: 20140711
  Serious: No
  Sender: FDA-Public Use
  Company Number: US-ASTRAZENECA-2013SE58590

PATIENT
  Age: 78 Year
  Sex: Female
  Weight: 53.5 kg

DRUGS (3)
  1. CRESTOR [Suspect]
     Indication: BLOOD CHOLESTEROL
     Route: 048
     Dates: start: 201306
  2. AMITRIPTYLINE [Concomitant]
  3. COQ10 [Concomitant]
     Dosage: DAILY

REACTIONS (10)
  - Visual impairment [Unknown]
  - Local swelling [Unknown]
  - Local swelling [Unknown]
  - Abnormal behaviour [Unknown]
  - Weight increased [Unknown]
  - Muscle spasms [Unknown]
  - Arthralgia [Unknown]
  - Constipation [Unknown]
  - Memory impairment [Unknown]
  - Off label use [Unknown]
